FAERS Safety Report 8920726 (Version 3)
Quarter: 2013Q4

REPORT INFORMATION
  Report Type: Report from Study
  Country: AU (occurrence: AU)
  Receive Date: 20121121
  Receipt Date: 20131125
  Transmission Date: 20140711
  Serious: Yes (Other)
  Sender: FDA-Public Use
  Company Number: AU-ROCHE-1149940

PATIENT
  Age: 81 Year
  Sex: Female
  Weight: 45 kg

DRUGS (9)
  1. ZELBORAF [Suspect]
     Indication: METASTATIC MALIGNANT MELANOMA
     Route: 048
     Dates: start: 20120817
  2. ZELBORAF [Suspect]
     Route: 048
  3. TENORMIN [Concomitant]
     Indication: HYPERTENSION
     Route: 048
  4. AVAPRO [Concomitant]
  5. LIPITOR [Concomitant]
  6. ASPIRIN [Concomitant]
     Dosage: STARTED BEFORE VEMURAFENIB; ONGOING
     Route: 048
  7. ATENOLOL [Concomitant]
     Dosage: STARTED BEFORE VEMURAFENIB; ONGOING
     Route: 048
  8. IRBESARTAN [Concomitant]
     Indication: HYPERTENSION
     Dosage: STARTED BEFORE VEMURAFENIB; ONGOING
     Route: 048
  9. ATORVASTATIN [Concomitant]
     Indication: DYSLIPIDAEMIA
     Dosage: STARTED BEFORE VEMURAFENIB; ONGOING
     Route: 048

REACTIONS (3)
  - Oedema peripheral [Recovered/Resolved]
  - Pleural effusion [Recovered/Resolved]
  - Arthralgia [Recovered/Resolved]
